FAERS Safety Report 8738784 (Version 4)
Quarter: 2014Q4

REPORT INFORMATION
  Report Type: Spontaneous
  Country: US (occurrence: None)
  Receive Date: 20120805
  Receipt Date: 20141015
  Transmission Date: 20150529
  Serious: Yes (Other)
  Sender: FDA-Public Use
  Company Number: ADR-2012-01408

PATIENT
  Sex: Female

DRUGS (8)
  1. LIORESAL [Suspect]
     Active Substance: BACLOFEN
  2. LOSARTAN [Suspect]
     Active Substance: LOSARTAN
  3. ASPIRIN. [Suspect]
     Active Substance: ASPIRIN
  4. CYMBALTA [Suspect]
     Active Substance: DULOXETINE HYDROCHLORIDE
  5. ETODOLAC. [Suspect]
     Active Substance: ETODOLAC
  6. SIMVASTATIN. [Suspect]
     Active Substance: SIMVASTATIN
  7. LIORESAL [Suspect]
     Active Substance: BACLOFEN
     Indication: MUSCLE SPASTICITY
  8. CALCIUM [Suspect]
     Active Substance: CALCIUM

REACTIONS (3)
  - Weight bearing difficulty [None]
  - Arthralgia [None]
  - Muscle tightness [None]
